FAERS Safety Report 7007114-0 (Version None)
Quarter: 2010Q3

REPORT INFORMATION
  Report Type: 
  Country: None (occurrence: None)
  Receive Date: 20100913
  Receipt Date: 20100902
  Transmission Date: 20110219
  Serious: Yes (Hospitalization, Other)
  Sender: FDA-Public Use
  Company Number: 2010SP028268

PATIENT
  Age: 21 Year
  Sex: Female
  Weight: 68.0396 kg

DRUGS (2)
  1. NUVARING [Suspect]
     Indication: CONTRACEPTION
     Dates: start: 20060101, end: 20080601
  2. TYLENOL (CON.) [Concomitant]

REACTIONS (6)
  - DRUG EXPOSURE BEFORE PREGNANCY [None]
  - FEAR OF DEATH [None]
  - INTRACRANIAL VENOUS SINUS THROMBOSIS [None]
  - OVARIAN CYST [None]
  - PREGNANCY [None]
  - QUALITY OF LIFE DECREASED [None]
